FAERS Safety Report 9192281 (Version 1)
Quarter: 2013Q1

REPORT INFORMATION
  Report Type: Spontaneous
  Country: IT (occurrence: None)
  Receive Date: 20130325
  Receipt Date: 20130325
  Transmission Date: 20140127
  Serious: Yes (Hospitalization)
  Sender: FDA-Public Use
  Company Number: GER/ITL/13/0028596

PATIENT
  Age: 48 Year
  Sex: Female

DRUGS (3)
  1. CITALOPRAM (CITALOPRAM) [Suspect]
     Indication: INSOMNIA
     Route: 048
     Dates: start: 20121220, end: 20121220
  2. CITALOPRAM (CITALOPRAM) [Suspect]
     Indication: INSOMNIA
     Route: 048
     Dates: start: 20121220, end: 20121220
  3. RIVOTRIL (CLONAZEPAM) [Suspect]

REACTIONS (4)
  - Bradykinesia [None]
  - Bradyphrenia [None]
  - Somnolence [None]
  - Incorrect dose administered [None]
